FAERS Safety Report 20579921 (Version 2)
Quarter: 2022Q1

REPORT INFORMATION
  Report Type: Spontaneous
  Country: DE (occurrence: DE)
  Receive Date: 20220310
  Receipt Date: 20220323
  Transmission Date: 20220423
  Serious: Yes (Hospitalization)
  Sender: FDA-Public Use
  Company Number: DE-TEVA-2022-DE-2014059

PATIENT
  Age: 53 Year
  Sex: Female

DRUGS (3)
  1. HYDROXYCHLOROQUINE [Suspect]
     Active Substance: HYDROXYCHLOROQUINE
     Indication: COVID-19
     Route: 065
     Dates: start: 202003, end: 202003
  2. ANAKINRA [Suspect]
     Active Substance: ANAKINRA
     Indication: Cytokine storm
     Dosage: IN TOTAL 9 DOSES OVER 12 DAYS
     Route: 058
     Dates: start: 202003, end: 202004
  3. METFORMIN [Concomitant]
     Active Substance: METFORMIN HYDROCHLORIDE
     Indication: Type 2 diabetes mellitus
     Route: 065

REACTIONS (5)
  - Long QT syndrome [Recovering/Resolving]
  - Klebsiella infection [Recovering/Resolving]
  - Proteus infection [Recovering/Resolving]
  - Sepsis [Recovering/Resolving]
  - Off label use [Unknown]

NARRATIVE: CASE EVENT DATE: 20200301
